FAERS Safety Report 12771536 (Version 1)
Quarter: 2016Q3

REPORT INFORMATION
  Report Type: Spontaneous
  Country: US (occurrence: US)
  Receive Date: 20160922
  Receipt Date: 20160922
  Transmission Date: 20161109
  Serious: No
  Sender: FDA-Public Use
  Company Number: US-AMGEN-USASP2016063846

PATIENT
  Age: 73 Year
  Sex: Male

DRUGS (6)
  1. NEULASTA [Suspect]
     Active Substance: PEGFILGRASTIM
     Indication: MANTLE CELL LYMPHOMA
     Dosage: UNK UNK, UNK
     Route: 065
  2. NEUPOGEN [Suspect]
     Active Substance: FILGRASTIM
     Indication: MANTLE CELL LYMPHOMA
     Dosage: UNK UNK, UNK
     Route: 065
  3. NEUPOGEN [Suspect]
     Active Substance: FILGRASTIM
     Indication: LYMPHADENOPATHY
  4. NEUPOGEN [Suspect]
     Active Substance: FILGRASTIM
     Indication: PROTEIN TOTAL ABNORMAL
  5. NEULASTA [Suspect]
     Active Substance: PEGFILGRASTIM
     Indication: PROTEIN TOTAL ABNORMAL
  6. NEULASTA [Suspect]
     Active Substance: PEGFILGRASTIM
     Indication: LYMPHADENOPATHY

REACTIONS (1)
  - Off label use [Unknown]
